FAERS Safety Report 7949179-5 (Version None)
Quarter: 2011Q4

REPORT INFORMATION
  Report Type: 
  Country: None (occurrence: None)
  Receive Date: 20111130
  Receipt Date: 20111124
  Transmission Date: 20120403
  Serious: Yes (Hospitalization)
  Sender: FDA-Public Use
  Company Number: SE-ROCHE-1016207

PATIENT
  Age: 79 Year
  Sex: Female

DRUGS (3)
  1. IBUPROFEN [Concomitant]
  2. PREDNISOLONE [Concomitant]
  3. ACTEMRA [Suspect]
     Indication: RHEUMATOID ARTHRITIS
     Dosage: FORM STRENGTH: 20 MG/ML
     Route: 042
     Dates: start: 20090312, end: 20110920

REACTIONS (1)
  - VASCULAR OCCLUSION [None]
